FAERS Safety Report 8123770 (Version 4)
Quarter: 2014Q1

REPORT INFORMATION
  Report Type: Spontaneous
  Country: US (occurrence: None)
  Receive Date: 20110812
  Receipt Date: 20140327
  Transmission Date: 20141002
  Serious: Yes (Life-Threatening, Other)
  Sender: FDA-Public Use
  Company Number: 003-054

PATIENT
  Age: 71 Year
  Sex: Female

DRUGS (10)
  1. CROFAB [Suspect]
     Indication: SNAKE BITE
     Dates: start: 20110728, end: 20110728
  2. PRADAXA [Concomitant]
  3. ADCETRIS (BRENTUXIMAB VEDOTIN) INJECTION [Concomitant]
  4. SYNTHROID [Concomitant]
  5. SINEMET [Concomitant]
  6. PROTONIX [Concomitant]
  7. LASIX [Concomitant]
  8. K-DUR [Concomitant]
  9. GLYBURIDE [Concomitant]
  10. BENADRYL [Concomitant]

REACTIONS (22)
  - Coagulopathy [None]
  - Blood glucose decreased [None]
  - Haemoglobin decreased [None]
  - Ecchymosis [None]
  - Pain [None]
  - Blood blister [None]
  - Screaming [None]
  - Stridor [None]
  - Cardio-respiratory arrest [None]
  - Laryngeal oedema [None]
  - Endotracheal intubation complication [None]
  - Pneumomediastinum [None]
  - Cyanosis [None]
  - Blood fibrinogen increased [None]
  - Prothrombin time prolonged [None]
  - Activated partial thromboplastin time prolonged [None]
  - Blood sodium increased [None]
  - Blood chloride increased [None]
  - Haematocrit decreased [None]
  - Pharyngeal injury [None]
  - Iatrogenic injury [None]
  - Anaphylactic reaction [None]
